FAERS Safety Report 11403732 (Version 1)
Quarter: 2015Q3

REPORT INFORMATION
  Report Type: Report from Study
  Country: BR (occurrence: BR)
  Receive Date: 20150821
  Receipt Date: 20150821
  Transmission Date: 20151125
  Serious: Yes (Death, Hospitalization, Other)
  Sender: FDA-Public Use
  Company Number: US-ASTRAZENECA-2015SE44784

PATIENT
  Age: 21 Month
  Sex: Female
  Weight: 11 kg

DRUGS (1)
  1. PALIVIZUMAB [Suspect]
     Active Substance: PALIVIZUMAB
     Indication: HEART DISEASE CONGENITAL
     Route: 030
     Dates: start: 201404, end: 201407

REACTIONS (6)
  - Urinary tract infection [Recovered/Resolved]
  - Respiratory disorder [Not Recovered/Not Resolved]
  - Lung disorder [Unknown]
  - Pneumonia [Recovering/Resolving]
  - Death [Fatal]
  - Disease complication [Not Recovered/Not Resolved]

NARRATIVE: CASE EVENT DATE: 201503
